FAERS Safety Report 12636691 (Version 1)
Quarter: 2016Q3

REPORT INFORMATION
  Report Type: Spontaneous
  Country: US (occurrence: US)
  Receive Date: 20160809
  Receipt Date: 20160809
  Transmission Date: 20161109
  Serious: No
  Sender: FDA-Public Use
  Company Number: US-ACTAVIS-2015-25660

PATIENT
  Age: 8 Month
  Sex: Female
  Weight: 117.91 kg

DRUGS (2)
  1. MICONAZOLE NITRATE-MICONAZOLE (AMALLC) [Suspect]
     Active Substance: MICONAZOLE NITRATE
     Indication: FUNGAL INFECTION
     Dosage: 1 DF, SINGLE
     Route: 067
     Dates: start: 20151115, end: 20151115
  2. CEFUROXIME. [Concomitant]
     Active Substance: CEFUROXIME
     Indication: PHARYNGITIS
     Route: 065

REACTIONS (2)
  - Rash [Unknown]
  - Drug ineffective [Unknown]

NARRATIVE: CASE EVENT DATE: 20151115
